FAERS Safety Report 12426769 (Version 1)
Quarter: 2016Q2

REPORT INFORMATION
  Report Type: Spontaneous
  Country: ES (occurrence: ES)
  Receive Date: 20160601
  Receipt Date: 20160601
  Transmission Date: 20160815
  Serious: Yes (Other)
  Sender: FDA-Public Use
  Company Number: ES-ALLERGAN-1658234US

PATIENT
  Age: 42 Year
  Sex: Male

DRUGS (4)
  1. PENICILLIN [Concomitant]
     Active Substance: PENICILLIN
     Indication: SYPHILIS
     Route: 042
  2. OZURDEX [Suspect]
     Active Substance: DEXAMETHASONE
     Indication: MACULAR OEDEMA
     Dosage: 0.7 MG, SINGLE
     Route: 031
  3. PREDNISONE. [Concomitant]
     Active Substance: PREDNISONE
     Indication: MACULAR OEDEMA
     Route: 048
  4. OZURDEX [Suspect]
     Active Substance: DEXAMETHASONE
     Indication: INFECTIVE UVEITIS

REACTIONS (3)
  - Cataract subcapsular [Unknown]
  - Macular fibrosis [Unknown]
  - Product use issue [Unknown]
